FAERS Safety Report 11617208 (Version 3)
Quarter: 2016Q1

REPORT INFORMATION
  Report Type: Report from Study
  Country: TR (occurrence: TR)
  Receive Date: 20151009
  Receipt Date: 20160202
  Transmission Date: 20160525
  Serious: Yes (Other)
  Sender: FDA-Public Use
  Company Number: TR-BAYER-2015-436430

PATIENT
  Age: 39 Year
  Sex: Female

DRUGS (1)
  1. BETAFERON [Suspect]
     Active Substance: INTERFERON BETA-1B
     Indication: MULTIPLE SCLEROSIS
     Dosage: UNK UNK, QOD
     Route: 058
     Dates: start: 20051201

REACTIONS (9)
  - Restless legs syndrome [None]
  - Abdominal pain upper [None]
  - Major depression [None]
  - Pain in extremity [None]
  - Lichen planus [Not Recovered/Not Resolved]
  - Gastritis [None]
  - Diabetes mellitus [Not Recovered/Not Resolved]
  - Exostosis [None]
  - Hyperlipidaemia [Not Recovered/Not Resolved]
